FAERS Safety Report 18093223 (Version 1)
Quarter: 2020Q3

REPORT INFORMATION
  Report Type: Spontaneous
  Country: US (occurrence: US)
  Receive Date: 20200730
  Receipt Date: 20200730
  Transmission Date: 20201103
  Serious: Yes (Death, Other)
  Sender: FDA-Public Use
  Company Number: US-GLAXOSMITHKLINE-US2020146469

PATIENT
  Age: 66 Year

DRUGS (1)
  1. ZANTAC [Suspect]
     Active Substance: RANITIDINE HYDROCHLORIDE
     Dates: start: 20170715, end: 20190615

REACTIONS (6)
  - Gastric cancer [Unknown]
  - Colorectal cancer [Unknown]
  - Renal cancer [Unknown]
  - Neoplasm malignant [Fatal]
  - Bladder cancer [Unknown]
  - Lung neoplasm malignant [Unknown]
